FAERS Safety Report 17314450 (Version 1)
Quarter: 2020Q1

REPORT INFORMATION
  Report Type: Spontaneous
  Country: US (occurrence: US)
  Receive Date: 20200124
  Receipt Date: 20200124
  Transmission Date: 20200409
  Serious: No
  Sender: FDA-Public Use
  Company Number: US-PCCINC-2018-PEL-003628

PATIENT

DRUGS (3)
  1. GABLOFEN [Suspect]
     Active Substance: BACLOFEN
     Indication: PRODUCT USED FOR UNKNOWN INDICATION
     Dosage: 75 MICROGRAM, QD
     Route: 037
  2. GABLOFEN [Suspect]
     Active Substance: BACLOFEN
     Dosage: 50 MICROGRAM, QD
     Route: 037
     Dates: start: 20181123
  3. GABLOFEN [Suspect]
     Active Substance: BACLOFEN
     Dosage: MINIMUM RATE
     Route: 037
     Dates: start: 20181127

REACTIONS (2)
  - Vomiting [Unknown]
  - Nausea [Unknown]
